FAERS Safety Report 8087867-3 (Version None)
Quarter: 2012Q1

REPORT INFORMATION
  Report Type: 
  Country: None (occurrence: None)
  Receive Date: 20120128
  Receipt Date: 20110502
  Transmission Date: 20120608
  Serious: Yes (Other)
  Sender: FDA-Public Use
  Company Number: US-ABBOTT-11P-163-0723141-00

PATIENT
  Age: 54 Year
  Sex: Female

DRUGS (5)
  1. HUMIRA [Suspect]
     Indication: CROHN'S DISEASE
     Dates: start: 20100903, end: 20110401
  2. XANAX [Concomitant]
     Indication: ANXIETY
  3. PERCOCET [Concomitant]
     Indication: PAIN
  4. TRIAMTERENE [Concomitant]
     Indication: HYPERTENSION
  5. PRAVACHOL [Concomitant]
     Indication: BLOOD CHOLESTEROL INCREASED

REACTIONS (8)
  - SINUSITIS [None]
  - CROHN'S DISEASE [None]
  - ABSCESS [None]
  - DRUG INEFFECTIVE [None]
  - RESPIRATORY TRACT INFECTION [None]
  - LOWER LIMB FRACTURE [None]
  - FALL [None]
  - OSTEOPOROSIS [None]
